FAERS Safety Report 8546293-0 (Version None)
Quarter: 2012Q3

REPORT INFORMATION
  Report Type: 
  Country: None (occurrence: None)
  Receive Date: 20120727
  Receipt Date: 20120319
  Transmission Date: 20120928
  Serious: No
  Sender: FDA-Public Use
  Company Number: US-ASTRAZENECA-2011SE75374

PATIENT
  Age: 38 Year
  Sex: Male
  Weight: 99.8 kg

DRUGS (5)
  1. SEROQUEL XR [Suspect]
     Route: 048
  2. LEXAPRO [Concomitant]
     Indication: ANTIDEPRESSANT THERAPY
  3. SEROQUEL XR [Suspect]
     Route: 048
  4. SEROQUEL XR [Suspect]
     Route: 048
  5. SEROQUEL XR [Suspect]
     Indication: BIPOLAR I DISORDER
     Route: 048

REACTIONS (9)
  - ADVERSE EVENT [None]
  - IMPAIRED WORK ABILITY [None]
  - MANIA [None]
  - ANGER [None]
  - ANXIETY [None]
  - PSYCHOTIC BEHAVIOUR [None]
  - INSOMNIA [None]
  - INCORRECT DOSE ADMINISTERED [None]
  - DRUG DOSE OMISSION [None]
